FAERS Safety Report 4900138-6 (Version None)
Quarter: 2006Q1

REPORT INFORMATION
  Report Type: 
  Country: None (occurrence: None)
  Receive Date: 20060203
  Receipt Date: 20060123
  Transmission Date: 20060701
  Serious: Yes (Hospitalization)
  Sender: FDA-Public Use
  Company Number: GB-BRISTOL-MYERS SQUIBB COMPANY-13260542

PATIENT
  Age: 63 Year
  Sex: Female

DRUGS (6)
  1. MITOMYCIN [Suspect]
     Indication: VULVAL CANCER
     Route: 042
     Dates: start: 20050908
  2. FLUOROURACIL [Suspect]
     Indication: VULVAL CANCER
     Route: 042
     Dates: start: 20050905
  3. RADIOTHERAPY [Concomitant]
     Indication: VULVAL CANCER
  4. ORAMORPH SR [Concomitant]
     Route: 048
  5. DOMPERIDONE [Concomitant]
     Route: 048
     Dates: start: 20050905
  6. PROFLAVINE [Concomitant]

REACTIONS (4)
  - DYSURIA [None]
  - NEUTROPENIC SEPSIS [None]
  - PAINFUL DEFAECATION [None]
  - PYREXIA [None]
